FAERS Safety Report 9537490 (Version 1)
Quarter: 2013Q3

REPORT INFORMATION
  Report Type: Spontaneous
  Country: ZA (occurrence: ZA)
  Receive Date: 20130919
  Receipt Date: 20130919
  Transmission Date: 20140515
  Serious: Yes (Life-Threatening, Hospitalization)
  Sender: FDA-Public Use
  Company Number: ZA-ASTRAZENECA-2013SE70031

PATIENT
  Sex: Male

DRUGS (1)
  1. NEXIAM [Suspect]
     Route: 048

REACTIONS (1)
  - Renal failure acute [Unknown]
